FAERS Safety Report 5025497-8 (Version None)
Quarter: 2006Q2

REPORT INFORMATION
  Report Type: 
  Country: None (occurrence: None)
  Receive Date: 20060608
  Receipt Date: 20060531
  Transmission Date: 20061013
  Serious: No
  Sender: FDA-Public Use
  Company Number: 225831

PATIENT
  Age: 73 Year
  Sex: Male

DRUGS (4)
  1. XOLAIR [Suspect]
     Indication: ASTHMA
     Dosage: 375 MG, SUBCUTANEOUS
     Route: 058
     Dates: start: 20060512, end: 20060526
  2. SINGULAIR [Concomitant]
  3. LOTREL (AMLODIPINE BESYLATE, BENAZEPRIL HYDROCHLORIDE) [Concomitant]
  4. LASIX [Concomitant]

REACTIONS (3)
  - ANAPHYLACTIC REACTION [None]
  - ARTHRALGIA [None]
  - HYPOTENSION [None]
